FAERS Safety Report 9378124 (Version 1)
Quarter: 2013Q3

REPORT INFORMATION
  Report Type: Spontaneous
  Country: JP (occurrence: JP)
  Receive Date: 20130701
  Receipt Date: 20130701
  Transmission Date: 20140515
  Serious: Yes (Hospitalization)
  Sender: FDA-Public Use
  Company Number: JP-GLAXOSMITHKLINE-B0899664A

PATIENT
  Age: 64 Year
  Sex: Female

DRUGS (6)
  1. LAMICTAL [Suspect]
     Indication: BIPOLAR DISORDER
     Dosage: 25MG PER DAY
     Route: 048
     Dates: start: 20130521, end: 20130528
  2. LIMAS [Concomitant]
     Indication: BIPOLAR DISORDER
     Dosage: 200MG TWICE PER DAY
     Route: 048
  3. ROHYPNOL [Concomitant]
     Indication: BIPOLAR DISORDER
     Dosage: 2MG PER DAY
     Route: 048
  4. CRESTOR [Concomitant]
     Indication: HYPERCHOLESTEROLAEMIA
     Dosage: 2.5MG PER DAY
     Route: 048
  5. MAGLAX [Concomitant]
     Indication: PROPHYLAXIS
     Dosage: 250MG THREE TIMES PER DAY
     Route: 048
  6. DEPAS [Concomitant]
     Indication: BIPOLAR DISORDER
     Dosage: 1.5MG PER DAY
     Route: 048

REACTIONS (3)
  - Erythema multiforme [Recovered/Resolved]
  - Malaise [Unknown]
  - Rash [Unknown]
